FAERS Safety Report 7211818-4 (Version None)
Quarter: 2011Q1

REPORT INFORMATION
  Report Type: 
  Country: None (occurrence: None)
  Receive Date: 20110105
  Receipt Date: 20101224
  Transmission Date: 20110831
  Serious: Yes (Hospitalization, Other)
  Sender: FDA-Public Use
  Company Number: FR-BAYER-2010-007815

PATIENT
  Sex: Female

DRUGS (9)
  1. COUMADIN [Concomitant]
  2. TAHOR [Concomitant]
     Dosage: 10 MG, UNK
  3. STILNOX [Concomitant]
  4. APROVEL [Concomitant]
     Dosage: 75 MG, UNK
  5. KARDEGIC [Concomitant]
  6. LASIX [Concomitant]
  7. MOXIFLOXACIN HCL [Suspect]
     Indication: URINARY TRACT INFECTION ENTEROCOCCAL
     Dosage: 400 MG, QD
     Route: 048
     Dates: start: 20101204, end: 20101206
  8. ATARAX [Concomitant]
  9. CARDENSIEL [Concomitant]
     Dosage: 1.25 MG, UNK

REACTIONS (6)
  - AGITATION [None]
  - HALLUCINATION [None]
  - OEDEMA PERIPHERAL [None]
  - MYALGIA [None]
  - CONFUSIONAL STATE [None]
  - RHABDOMYOLYSIS [None]
